FAERS Safety Report 14144655 (Version 1)
Quarter: 2017Q4

REPORT INFORMATION
  Report Type: Spontaneous
  Country: GB (occurrence: GB)
  Receive Date: 20171031
  Receipt Date: 20171031
  Transmission Date: 20180321
  Serious: Yes (Other)
  Sender: FDA-Public Use
  Company Number: GB-TORRENT-00015776

PATIENT
  Age: 22 Month
  Sex: Male
  Weight: 12 kg

DRUGS (3)
  1. CLENIL MODULITE [Concomitant]
     Active Substance: BECLOMETHASONE DIPROPIONATE
  2. MONTELUKAST [Suspect]
     Active Substance: MONTELUKAST SODIUM
  3. SALBUTAMOL BASE [Concomitant]

REACTIONS (3)
  - Fatigue [Not Recovered/Not Resolved]
  - Drug administered to patient of inappropriate age [Unknown]
  - Somnolence [Unknown]

NARRATIVE: CASE EVENT DATE: 20171002
